FAERS Safety Report 6007528-1 (Version None)
Quarter: 2008Q4

REPORT INFORMATION
  Report Type: 
  Country: None (occurrence: None)
  Receive Date: 20081217
  Receipt Date: 20080616
  Transmission Date: 20090506
  Serious: No
  Sender: FDA-Public Use
  Company Number: US-ASTRAZENECA-2008UW09172

PATIENT
  Age: 55 Year
  Sex: Female
  Weight: 78 kg

DRUGS (7)
  1. CRESTOR [Suspect]
     Indication: BLOOD CHOLESTEROL INCREASED
     Route: 048
     Dates: start: 20080401
  2. CRESTOR [Suspect]
     Route: 048
  3. THYROID MEDICATION [Concomitant]
  4. CALCITRIOL [Concomitant]
  5. PREVACID [Concomitant]
  6. LORAZEPAM PRN [Concomitant]
  7. XOLEGEL [Concomitant]

REACTIONS (5)
  - GASTROOESOPHAGEAL REFLUX DISEASE [None]
  - MUSCULOSKELETAL PAIN [None]
  - MYALGIA [None]
  - PAIN [None]
  - PAIN IN EXTREMITY [None]
